FAERS Safety Report 8844861 (Version 1)
Quarter: 2012Q4

REPORT INFORMATION
  Report Type: 
  Country: CA (occurrence: CA)
  Receive Date: 20121017
  Receipt Date: 20121017
  Transmission Date: 20130627
  Serious: Yes (Other)
  Sender: FDA-Public Use
  Company Number: CA-ELI_LILLY_AND_COMPANY-CA201210001812

PATIENT
  Age: 59 Year
  Sex: Female
  Weight: 69.84 kg

DRUGS (6)
  1. CYMBALTA [Suspect]
  2. HUMIRA [Concomitant]
     Dosage: 40 mg, other
     Route: 058
  3. CYANOCOBALAMIN [Concomitant]
     Dosage: UNK
  4. ERGOCALCIFEROL [Concomitant]
  5. FOLIC ACID [Concomitant]
  6. METHOTREXATE [Concomitant]

REACTIONS (10)
  - Chronic obstructive pulmonary disease [Unknown]
  - Adverse drug reaction [Unknown]
  - Chest discomfort [Unknown]
  - Dry mouth [Unknown]
  - Dyspnoea [Unknown]
  - Feeling abnormal [Unknown]
  - Fibromyalgia [Unknown]
  - Osteoarthritis [Unknown]
  - Panic attack [Unknown]
  - Tremor [Unknown]
